FAERS Safety Report 7475858-2 (Version None)
Quarter: 2011Q2

REPORT INFORMATION
  Report Type: 
  Country: None (occurrence: None)
  Receive Date: 20110512
  Receipt Date: 20110504
  Transmission Date: 20111010
  Serious: Yes (Hospitalization)
  Sender: FDA-Public Use
  Company Number: NL-MEDIMMUNE-MEDI-0012086

PATIENT
  Sex: Female
  Weight: 8.4 kg

DRUGS (1)
  1. SYNAGIS [Suspect]
     Route: 030
     Dates: start: 20100928, end: 20101220

REACTIONS (6)
  - ILL-DEFINED DISORDER [None]
  - COUGH [None]
  - RESPIRATORY TRACT INFECTION VIRAL [None]
  - DYSPNOEA [None]
  - RHINOVIRUS INFECTION [None]
  - NASOPHARYNGITIS [None]
